FAERS Safety Report 7677000-1 (Version None)
Quarter: 2011Q3

REPORT INFORMATION
  Report Type: 
  Country: None (occurrence: None)
  Receive Date: 20110811
  Receipt Date: 20110809
  Transmission Date: 20111222
  Serious: Yes (Other)
  Sender: FDA-Public Use
  Company Number: CA-ROCHE-714071

PATIENT
  Sex: Male

DRUGS (2)
  1. RIBAVIRIN [Suspect]
     Indication: HEPATITIS C
     Route: 048
     Dates: start: 20100108, end: 20101206
  2. PEGASYS [Suspect]
     Indication: HEPATITIS C
     Route: 058
     Dates: start: 20100108, end: 20101206

REACTIONS (11)
  - SARCOIDOSIS [None]
  - NERVE COMPRESSION [None]
  - DIARRHOEA [None]
  - ALOPECIA [None]
  - HEADACHE [None]
  - ANXIETY [None]
  - HYPOACUSIS [None]
  - DIZZINESS [None]
  - ANURIA [None]
  - IRITIS [None]
  - PRURITUS [None]
